FAERS Safety Report 8229017-6 (Version None)
Quarter: 2012Q1

REPORT INFORMATION
  Report Type: 
  Country: None (occurrence: None)
  Receive Date: 20120322
  Receipt Date: 20120320
  Transmission Date: 20120608
  Serious: No
  Sender: FDA-Public Use
  Company Number: US-PFIZER INC-2012073735

PATIENT
  Sex: Female
  Weight: 62.132 kg

DRUGS (4)
  1. PREMARIN [Concomitant]
     Indication: HORMONE LEVEL ABNORMAL
     Dosage: UNK
  2. LISINOPRIL [Concomitant]
     Dosage: UNK
  3. LIPITOR [Suspect]
     Indication: BLOOD CHOLESTEROL INCREASED
     Dosage: 20 MG, DAILY
     Route: 048
  4. HYDROCHLOROTHIAZIDE [Concomitant]
     Dosage: UNK

REACTIONS (1)
  - ARTHRALGIA [None]
